FAERS Safety Report 16625252 (Version 3)
Quarter: 2019Q4

REPORT INFORMATION
  Report Type: Spontaneous
  Country: US (occurrence: US)
  Receive Date: 20190724
  Receipt Date: 20191111
  Transmission Date: 20200122
  Serious: Yes (Hospitalization, Other)
  Sender: FDA-Public Use
  Company Number: US-PFIZER INC-2019311401

PATIENT
  Age: 56 Year
  Sex: Female

DRUGS (3)
  1. FLUDARABINE PHOSPHATE. [Suspect]
     Active Substance: FLUDARABINE PHOSPHATE
     Indication: MYELOFIBROSIS
     Dosage: UNK
  2. ANTILYMPHOCYTE IMMUNOGLOBULINS [Suspect]
     Active Substance: THYMOCYTE IMMUNE GLOBULIN NOS
     Dosage: UNK
  3. BUSULFAN. [Suspect]
     Active Substance: BUSULFAN
     Indication: MYELOFIBROSIS
     Dosage: UNK

REACTIONS (2)
  - Febrile neutropenia [Unknown]
  - Clostridium difficile colitis [Unknown]
